FAERS Safety Report 8293049-2 (Version None)
Quarter: 2012Q2

REPORT INFORMATION
  Report Type: 
  Country: None (occurrence: None)
  Receive Date: 20120417
  Receipt Date: 20110830
  Transmission Date: 20120825
  Serious: No
  Sender: FDA-Public Use
  Company Number: US-ASTRAZENECA-2011SE46820

PATIENT
  Age: 48 Year
  Sex: Female

DRUGS (3)
  1. NEXIUM [Suspect]
     Route: 048
  2. TWO OTHER CONCOMITANT MEDICATION [Concomitant]
  3. BONIVA [Concomitant]

REACTIONS (4)
  - BARRETT'S OESOPHAGUS [None]
  - OSTEOPOROSIS [None]
  - OESOPHAGEAL DILATATION [None]
  - SCLERODERMA [None]
